FAERS Safety Report 7504343-4 (Version None)
Quarter: 2011Q2

REPORT INFORMATION
  Report Type: 
  Country: None (occurrence: None)
  Receive Date: 20110404
  Receipt Date: 20101108
  Transmission Date: 20111010
  Serious: Yes (Other)
  Sender: FDA-Public Use
  Company Number: 011850

PATIENT
  Age: 18 Year
  Sex: Female

DRUGS (5)
  1. CYCLOSPORINE [Concomitant]
  2. MYCOPHENOLATE MOFETIL [Concomitant]
  3. FLUDARABINE (FLUDARABINE) [Concomitant]
  4. ATG (ANTILYMPHOCYTE IMMUNOGLOBULIN (HORSE)) [Concomitant]
  5. BUSULFEX [Suspect]
     Indication: BONE MARROW CONDITIONING REGIMEN
     Dosage: 0.8 MG/KG, Q6HR

REACTIONS (4)
  - HERPES ZOSTER [None]
  - GRAFT VERSUS HOST DISEASE [None]
  - INFLUENZA [None]
  - PANCREATITIS [None]
